FAERS Safety Report 11108768 (Version 2)
Quarter: 2015Q3

REPORT INFORMATION
  Report Type: Report from Study
  Country: SK (occurrence: SK)
  Receive Date: 20150513
  Receipt Date: 20150826
  Transmission Date: 20151125
  Serious: Yes (Hospitalization, Disabling)
  Sender: FDA-Public Use
  Company Number: SK-ROCHE-1577299

PATIENT
  Age: 68 Year
  Sex: Female
  Weight: 62 kg

DRUGS (14)
  1. ENELBIN (SLOVAKIA) [Concomitant]
     Route: 065
  2. CONCOR COR [Concomitant]
     Active Substance: BISOPROLOL FUMARATE
  3. COAXIL [Concomitant]
  4. HUMULIN NOS [Concomitant]
     Active Substance: INSULIN HUMAN
     Route: 065
     Dates: end: 20140728
  5. RANIBIZUMAB [Suspect]
     Active Substance: RANIBIZUMAB
     Indication: NEOVASCULAR AGE-RELATED MACULAR DEGENERATION
     Dosage: LAST DOSE PRIOR TO SAE: 28/JUL/2014
     Route: 050
     Dates: start: 20140115
  6. SORTIS [Concomitant]
     Active Substance: ATORVASTATIN
  7. TEBOKAN [Concomitant]
     Route: 065
     Dates: end: 20140728
  8. ATORIS [Concomitant]
     Active Substance: ATORVASTATIN CALCIUM
  9. VESSEL DUE F [Concomitant]
     Active Substance: SULODEXIDE
  10. LUSOPRESS [Concomitant]
     Active Substance: NITRENDIPINE
     Route: 065
  11. METFOGAMMA [Concomitant]
     Route: 065
  12. LUCETAM [Concomitant]
     Route: 065
     Dates: end: 20140728
  13. EUTHYROX [Concomitant]
     Active Substance: LEVOTHYROXINE SODIUM
     Route: 065
     Dates: end: 20140728
  14. CLOPIDOGREL [Concomitant]
     Active Substance: CLOPIDOGREL BISULFATE

REACTIONS (1)
  - Transient ischaemic attack [Recovering/Resolving]

NARRATIVE: CASE EVENT DATE: 20140207
